FAERS Safety Report 24396081 (Version 2)
Quarter: 2025Q3

REPORT INFORMATION
  Report Type: Spontaneous
  Country: JP (occurrence: JP)
  Receive Date: 20241004
  Receipt Date: 20250809
  Transmission Date: 20251020
  Serious: Yes (Death, Other)
  Sender: ALEXION PHARMACEUTICALS
  Company Number: JP-ASTRAZENECA-240054610_013020_P_1

PATIENT
  Age: 86 Year
  Sex: Female

DRUGS (6)
  1. TAGRISSO [Suspect]
     Active Substance: OSIMERTINIB
     Indication: Infection
     Dates: start: 20240106, end: 20240125
  2. FLAGYL [Suspect]
     Active Substance: METRONIDAZOLE\METRONIDAZOLE HYDROCHLORIDE
     Indication: Infection
     Dates: start: 20240113, end: 20240125
  3. LEVOFLOXACIN HEMIHYDRATE [Concomitant]
     Active Substance: LEVOFLOXACIN
  4. CARBOCYSTEINE [Concomitant]
     Active Substance: CARBOCYSTEINE
  5. POTASSIUM ASPARTATE [Concomitant]
     Active Substance: POTASSIUM ASPARTATE
  6. METRONIDAZOLE [Concomitant]
     Active Substance: METRONIDAZOLE

REACTIONS (8)
  - Left ventricular dysfunction [Fatal]
  - Pancreatitis [Recovering/Resolving]
  - Hyponatraemia [Unknown]
  - Renal impairment [Unknown]
  - Multi-organ disorder [Unknown]
  - Pleural effusion [Unknown]
  - Depressed level of consciousness [Unknown]
  - Oedema peripheral [Unknown]

NARRATIVE: CASE EVENT DATE: 20240113
